FAERS Safety Report 22186269 (Version 5)
Quarter: 2023Q4

REPORT INFORMATION
  Report Type: Spontaneous
  Country: DE (occurrence: DE)
  Receive Date: 20230407
  Receipt Date: 20231102
  Transmission Date: 20240109
  Serious: Yes (Hospitalization, Other)
  Sender: FDA-Public Use
  Company Number: DE-BoehringerIngelheim-2023-BI-228977

PATIENT
  Age: 33 Year
  Sex: Female
  Weight: 52 kg

DRUGS (62)
  1. CLONIDINE [Suspect]
     Active Substance: CLONIDINE
     Indication: Hypertension
     Dosage: (UNIT DOSE=6 AMPULE)
     Dates: start: 20011205
  2. AMOXICILLIN\CLAVULANATE POTASSIUM [Suspect]
     Active Substance: AMOXICILLIN\CLAVULANATE POTASSIUM
     Indication: Infection
     Dates: start: 20011121, end: 20011123
  3. CLONAZEPAM [Suspect]
     Active Substance: CLONAZEPAM
     Indication: Epilepsy
     Dates: start: 20011112, end: 20011205
  4. RANITIDINE HYDROCHLORIDE [Suspect]
     Active Substance: RANITIDINE HYDROCHLORIDE
     Indication: Prophylaxis
     Dates: start: 20011123, end: 20011126
  5. NADROPARIN CALCIUM [Suspect]
     Active Substance: NADROPARIN CALCIUM
     Indication: Thrombosis prophylaxis
     Dates: start: 20011117, end: 20011124
  6. MIDAZOLAM MALEATE [Suspect]
     Active Substance: MIDAZOLAM MALEATE
     Indication: Pain
     Dates: start: 20011113, end: 20011117
  7. EGG PHOSPHOLIPIDS\GLYCERIN\SOYBEAN OIL [Suspect]
     Active Substance: EGG PHOSPHOLIPIDS\GLYCERIN\SOYBEAN OIL
     Indication: Parenteral nutrition
     Dosage: DAILY, PRN.
     Dates: start: 20011121, end: 20011205
  8. PROMETHAZINE HYDROCHLORIDE [Suspect]
     Active Substance: PROMETHAZINE HYDROCHLORIDE
     Indication: Agitation
     Dosage: 6 SEPARATED DOSES
     Dates: start: 20011121, end: 20011123
  9. NOVODIGAL (.BETA.-ACETYLDIGOXIN) [Suspect]
     Active Substance: .BETA.-ACETYLDIGOXIN
     Indication: Cardiac failure
     Dates: start: 20011121, end: 20011202
  10. URSODIOL [Suspect]
     Active Substance: URSODIOL
     Indication: Cholelithiasis
     Dosage: 3 DF
     Dates: start: 20011123, end: 20011128
  11. ORNITHINE ASPARTATE [Suspect]
     Active Substance: ORNITHINE ASPARTATE
     Indication: Liver disorder
     Dosage: 4 DF 4 SEPARATED DOSES
     Dates: start: 20011124, end: 20011128
  12. ACTRAPID [Suspect]
     Active Substance: INSULIN HUMAN
     Indication: Metabolic disorder
     Dates: start: 20011124, end: 20011202
  13. NOVALGIN (METAMIZOLE SODIUM) [Suspect]
     Active Substance: METAMIZOLE SODIUM
     Indication: Pain
     Dates: start: 20011128, end: 20011202
  14. LASIX [Suspect]
     Active Substance: FUROSEMIDE
     Indication: Oedema
  15. LAMICTAL [Suspect]
     Active Substance: LAMOTRIGINE
     Indication: Epilepsy
     Dates: start: 20011112, end: 20011114
  16. LAMICTAL [Suspect]
     Active Substance: LAMOTRIGINE
     Dates: start: 20011118, end: 20011124
  17. CLAFORAN [Suspect]
     Active Substance: CEFOTAXIME SODIUM
     Indication: Infection
     Dates: start: 20011130, end: 20011201
  18. SULFAMETHOXAZOLE\TRIMETHOPRIM [Suspect]
     Active Substance: SULFAMETHOXAZOLE\TRIMETHOPRIM
     Indication: Infection
     Dates: start: 20011116, end: 20011120
  19. DIFLUCAN [Suspect]
     Active Substance: FLUCONAZOLE
     Indication: Candida infection
     Dates: start: 20011118, end: 20011120
  20. TAVOR (LORAZEPAM) [Suspect]
     Active Substance: LORAZEPAM
     Indication: Agitation
     Dates: start: 20011118, end: 20011202
  21. THEOPHYLLINE [Suspect]
     Active Substance: THEOPHYLLINE
     Indication: Bronchospasm
     Dates: start: 20011205
  22. LACTULOSE [Suspect]
     Active Substance: LACTULOSE
     Indication: Constipation
     Route: 048
     Dates: start: 20011128, end: 20011205
  23. AMINO ACIDS, SOURCE UNSPECIFIED [Suspect]
     Active Substance: AMINO ACIDS, SOURCE UNSPECIFIED
     Indication: Parenteral nutrition
     Dates: start: 20011124, end: 20011130
  24. FERRLECIT [Suspect]
     Active Substance: SODIUM FERRIC GLUCONATE COMPLEX
     Indication: Parenteral nutrition
     Dosage: DAILY DOSE=1 3 SEPARATED DOSES
     Dates: start: 20011205, end: 20011205
  25. CIPROFLOXACIN [Suspect]
     Active Substance: CIPROFLOXACIN
     Indication: Infection
     Dosage: 2 SEPARATED DOSES
     Dates: start: 20011121, end: 20011123
  26. SAB SIMPLEX SIMETHICONE [Concomitant]
     Indication: Flatulence
  27. ARTERENOL: NOREPINEPHRINE HYDROCHLORIDE [Concomitant]
     Indication: Shock
     Dates: start: 20011109, end: 20011203
  28. POTASSIUM CHLORIDE: POTASSIUM CHLORIDE [Concomitant]
     Indication: Metabolic disorder
  29. ZIENAM: IMIPENEM, CILASTATIN SODIUM [Concomitant]
     Indication: Infection
  30. FENTANYL: FENTANYL [Concomitant]
     Indication: Pain
     Dates: start: 20011120, end: 20011120
  31. DOBUTAMIN: DOBUTAMINE [Concomitant]
     Indication: Cardiac failure
     Dates: start: 20011121, end: 20011121
  32. IRON [Concomitant]
     Active Substance: IRON
     Indication: Iron deficiency
     Dosage: DAILY DOSE=1 AMPULE
  33. ALBUMIN HUMAN [Concomitant]
     Active Substance: ALBUMIN HUMAN
     Indication: Fluid replacement
     Dosage: 100 ML TREATMENT WAS DISCONTINUED ON 16 NOV 2001.
     Dates: end: 20011116
  34. ALBUMIN HUMAN [Concomitant]
     Active Substance: ALBUMIN HUMAN
     Dosage: 200 ML TREATMENT WAS FROM 21 NOV 2001 TO 24 NOV 2
     Dates: start: 20011121, end: 20011124
  35. KETAMIN: KETAMINE [Concomitant]
     Indication: Stupor
     Dates: start: 20011205, end: 20011205
  36. PANTOPRAZOLE [Concomitant]
     Active Substance: PANTOPRAZOLE
     Indication: Prophylaxis against gastrointestinal ulcer
  37. NYSTATIN: NYSTATIN [Concomitant]
     Indication: Candida infection
     Dosage: SEVERAL TIMES A DAY
  38. DECORTIN H: PREDNISOLONE [Concomitant]
     Indication: Colitis ulcerative
  39. VITAMIN B1: THIAMINE [Concomitant]
     Indication: Vitamin B1 deficiency
     Dosage: DOSE: REPORTED AS 100. 2 SEPARATED DOSES
  40. SODIUM CHLORIDE 0.9%: SODIUM CHLORIDE, [Concomitant]
     Indication: Fluid replacement
  41. DIPIDOLOR: PIRITRAMIDE [Concomitant]
     Indication: Pain
     Dosage: 21 NOV 2001:3 MG, QDS WAS DISCONTINUED.05 DEC 2001: 3 MG, TID, PRN WAS STARTED
     Dates: start: 20011121, end: 20011205
  42. DIPIDOLOR: PIRITRAMIDE [Concomitant]
     Dosage: 3 MG, TID, PRN WAS STARTED
     Dates: start: 20011121
  43. OTRIVEN: XYLOMETAZOLINE [Concomitant]
     Indication: Nasopharyngitis
     Dosage: 3 DF
  44. AKINETON: BIPERIDEN HYDROCHLORIDE [Concomitant]
     Indication: Extrapyramidal disorder
     Dosage: 2 SEPARATED DOSES
  45. CALCIUM: CALCIUM [Concomitant]
     Indication: Calcium deficiency
     Dosage: 26 NOV 2001:10 ML / DAY OF 20%AMPOULE WAS DISCONTINUED.05 DEC 2001: 1AMPOULE OF+
     Dates: start: 20011126, end: 20011205
  46. ENALAPRIL OR ENALAPRILAT [Concomitant]
     Indication: Cardiac failure
  47. ERGENYL: VALPROATE SODIUM, [Concomitant]
     Indication: Epilepsy
     Dosage: 2 SEPARATED DOSES
  48. BRICANYL: TERBUTALINE [Concomitant]
     Indication: Obstructive airways disorder
     Dosage: 5 AMPOULE PRN
  49. PASPERTIN [Concomitant]
     Indication: Nausea
     Dosage: DAILY DOSE=1 ?AMPULE
     Dates: start: 20011113, end: 20011117
  50. DEXTROSE [Concomitant]
     Active Substance: DEXTROSE\DEXTROSE MONOHYDRATE
     Indication: Fluid replacement
     Dosage: DOSE REGIMEN WAS REPORTED AS : 5% AT 2000 ML / DAY, 40% AT 500 ML / DAY AND 70 % AT 2000 ML /DAY
  51. HEPARIN SODIUM [Concomitant]
     Active Substance: HEPARIN SODIUM
     Indication: Thrombosis prophylaxis
     Dates: start: 20011126, end: 20011203
  52. HEPARIN SODIUM [Concomitant]
     Active Substance: HEPARIN SODIUM
     Dates: start: 20011109, end: 20011109
  53. KONAKION [Concomitant]
     Active Substance: PHYTONADIONE
     Indication: Vitamin K deficiency
     Dates: start: 20011113
  54. fosfocin [Concomitant]
     Indication: Infection
     Dates: start: 20011130, end: 20011212
  55. CLONT [Concomitant]
     Indication: Infection
     Dates: start: 20011115, end: 20011120
  56. PYRIDOXINE [Concomitant]
     Active Substance: PYRIDOXINE
     Indication: Hypovitaminosis
     Dates: start: 20011205, end: 20011205
  57. VANCOMYCIN: VANCOMYCIN [Concomitant]
     Indication: Infection
  58. VITAMIN B COMPLEX [Concomitant]
     Active Substance: CYANOCOBALAMIN\DEXPANTHENOL\NIACINAMIDE\PYRIDOXINE HYDROCHLORIDE\RIBOFLAVIN 5^-PHOSPHATE SODIUM\THIA
     Indication: Vitamin B complex deficiency
  59. NUTRIFLEX:AMINO ACIDS NOS [Concomitant]
     Indication: Parenteral nutrition
  60. VITINTRA:ERGOCALCIFEROL [Concomitant]
     Indication: Parenteral nutrition
     Dosage: 1AMPOULE PER DAY, PRN.
     Dates: start: 20011121, end: 20011205
  61. XANEF:ENALAPRIL OR ENALAPRILAT [Concomitant]
     Indication: Cardiac failure
  62. FERRO-FOLSAN [Concomitant]
     Indication: Iron deficiency

REACTIONS (3)
  - Toxic epidermal necrolysis [Recovered/Resolved]
  - Sepsis [Recovered/Resolved]
  - Stevens-Johnson syndrome [Recovered/Resolved]

NARRATIVE: CASE EVENT DATE: 20011128
